FAERS Safety Report 7325731-5 (Version None)
Quarter: 2011Q1

REPORT INFORMATION
  Report Type: 
  Country: None (occurrence: None)
  Receive Date: 20110302
  Receipt Date: 20110217
  Transmission Date: 20110831
  Serious: Yes (Other)
  Sender: FDA-Public Use
  Company Number: US-BAYER-2011-016182

PATIENT
  Sex: Male
  Weight: 136.5 kg

DRUGS (4)
  1. ALEVE (CAPLET) [Suspect]
     Indication: PRODUCT USED FOR UNKNOWN INDICATION
     Dosage: 5 TO 6 TABLETS DAILY
     Route: 048
     Dates: end: 20110217
  2. LIPITOR [Concomitant]
     Route: 048
  3. ASPIRIN [Concomitant]
  4. AVAPRO [Concomitant]
     Route: 048

REACTIONS (3)
  - DYSPEPSIA [None]
  - GROIN PAIN [None]
  - NEOPLASM [None]
